FAERS Safety Report 8511176-9 (Version None)
Quarter: 2012Q3

REPORT INFORMATION
  Report Type: 
  Country: None (occurrence: None)
  Receive Date: 20120716
  Receipt Date: 20120618
  Transmission Date: 20120928
  Serious: No
  Sender: FDA-Public Use
  Company Number: US-009507513-1207USA000850

PATIENT

DRUGS (11)
  1. ALLEGRA [Concomitant]
  2. PROVENTIL [Concomitant]
     Route: 055
  3. CHONDROITIN [Concomitant]
  4. VITAMINS (UNSPECIFIED) [Concomitant]
  5. SYNTHROID [Concomitant]
  6. LOVAZA [Concomitant]
  7. CALCIUM (UNSPECIFIED) [Concomitant]
  8. HYZAAR [Suspect]
     Route: 048
  9. IBUPROFEN (ADVIL) [Concomitant]
  10. GLUCAMETACIN [Concomitant]
  11. DIOVAN [Concomitant]

REACTIONS (3)
  - SYNCOPE [None]
  - HYPERTENSION [None]
  - DRUG INTOLERANCE [None]
